FAERS Safety Report 8720620 (Version 2)
Quarter: 2015Q2

REPORT INFORMATION
  Report Type: Report from Study
  Country: US (occurrence: US)
  Receive Date: 20120813
  Receipt Date: 20150624
  Transmission Date: 20150821
  Serious: Yes (Hospitalization)
  Sender: FDA-Public Use
  Company Number: US-ROCHE-1099336

PATIENT
  Age: 46 Year
  Sex: Male

DRUGS (9)
  1. ACTIVASE [Suspect]
     Active Substance: ALTEPLASE
     Indication: ACUTE MYOCARDIAL INFARCTION
     Route: 042
     Dates: start: 19880828
  2. NALOXONE [Concomitant]
     Active Substance: NALOXONE
     Route: 048
  3. MORPHINE SULPHATE DRIP [Concomitant]
     Dosage: 2-6 MG
     Route: 065
  4. ACTIVASE [Suspect]
     Active Substance: ALTEPLASE
     Route: 042
  5. LIDOCAIN [Concomitant]
     Active Substance: LIDOCAINE
     Route: 065
  6. HEPARIN [Concomitant]
     Active Substance: HEPARIN SODIUM
  7. ASPIRIN. [Concomitant]
     Active Substance: ASPIRIN
  8. NITROGLYCERIN. [Concomitant]
     Active Substance: NITROGLYCERIN
     Route: 065
  9. LOPRESSOR [Concomitant]
     Active Substance: METOPROLOL TARTRATE
     Dosage: EVERY NIGHT AT BED TIME
     Route: 048

REACTIONS (3)
  - Blood creatine phosphokinase increased [Unknown]
  - Arrhythmia [Recovered/Resolved]
  - Phlebitis [Unknown]

NARRATIVE: CASE EVENT DATE: 19880828
